FAERS Safety Report 16476663 (Version 1)
Quarter: 2019Q2

REPORT INFORMATION
  Report Type: Spontaneous
  Country: US (occurrence: US)
  Receive Date: 20190626
  Receipt Date: 20190626
  Transmission Date: 20190711
  Serious: No
  Sender: FDA-Public Use
  Company Number: US-TAKEDA-2019TUS037695

PATIENT
  Sex: Male

DRUGS (19)
  1. NINLARO [Suspect]
     Active Substance: IXAZOMIB CITRATE
     Indication: PLASMA CELL MYELOMA
     Dosage: 4 MILLIGRAM, 1/WEEK
     Route: 048
     Dates: start: 20190417
  2. POMALYST [Concomitant]
     Active Substance: POMALIDOMIDE
     Indication: PRODUCT USED FOR UNKNOWN INDICATION
     Dosage: UNK
     Route: 065
  3. TESTOTARD [Concomitant]
  4. TIZADINE [Concomitant]
     Active Substance: TIZANIDINE HYDROCHLORIDE
  5. WELLBUTRIN [Concomitant]
     Active Substance: BUPROPION HYDROCHLORIDE
  6. ACYCLOVIR                          /00587301/ [Concomitant]
     Active Substance: ACYCLOVIR
  7. CALCIUM [Concomitant]
     Active Substance: CALCIUM
  8. LYRICA [Concomitant]
     Active Substance: PREGABALIN
  9. CELEBREX [Concomitant]
     Active Substance: CELECOXIB
  10. FLOMAX [Concomitant]
     Active Substance: TAMSULOSIN HYDROCHLORIDE
  11. GABAPENTIN. [Concomitant]
     Active Substance: GABAPENTIN
  12. LEVOTHYROXIN [Concomitant]
     Active Substance: LEVOTHYROXINE
  13. AMBIEN [Concomitant]
     Active Substance: ZOLPIDEM TARTRATE
  14. ASPIRIN                            /00002701/ [Concomitant]
     Active Substance: ASPIRIN
  15. MICROZIDE [Concomitant]
     Active Substance: HYDROCHLOROTHIAZIDE
  16. FEXOFENADINE [Concomitant]
     Active Substance: FEXOFENADINE\FEXOFENADINE HYDROCHLORIDE
  17. OMEPRAZOL                          /00661201/ [Concomitant]
     Active Substance: OMEPRAZOLE
  18. PROVENTIL [Concomitant]
     Active Substance: ALBUTEROL
  19. TEMOVATE [Concomitant]
     Active Substance: CLOBETASOL PROPIONATE

REACTIONS (3)
  - Pruritus [Unknown]
  - Fluid retention [Unknown]
  - Off label use [Unknown]
